FAERS Safety Report 20449563 (Version 1)
Quarter: 2022Q1

REPORT INFORMATION
  Report Type: Spontaneous
  Country: US (occurrence: None)
  Receive Date: 20220209
  Receipt Date: 20220209
  Transmission Date: 20220424
  Serious: Yes (Death)
  Sender: FDA-Public Use
  Company Number: None

PATIENT
  Sex: Male
  Weight: 49 kg

DRUGS (2)
  1. CISPLATIN [Suspect]
     Active Substance: CISPLATIN
  2. PEMETREXED (ALIMTA; LY23514) [Concomitant]

REACTIONS (2)
  - Malignant neoplasm progression [None]
  - General physical health deterioration [None]

NARRATIVE: CASE EVENT DATE: 20211004
